FAERS Safety Report 11155718 (Version 1)
Quarter: 2015Q2

REPORT INFORMATION
  Report Type: Spontaneous
  Country: IT (occurrence: IT)
  Receive Date: 20150602
  Receipt Date: 20150602
  Transmission Date: 20150821
  Serious: Yes (Other)
  Sender: FDA-Public Use
  Company Number: IT-MYLANLABS-2015M1018119

PATIENT

DRUGS (3)
  1. METHYLPREDNISOLONE. [Suspect]
     Active Substance: METHYLPREDNISOLONE
     Indication: RELAPSING-REMITTING MULTIPLE SCLEROSIS
     Dosage: 8 MG DAILY FOR 3 DAYS FOLLOWED BY 4 MG DAILY FOR OTHER 3 DAYS
     Route: 065
  2. BACLOFEN. [Suspect]
     Active Substance: BACLOFEN
     Indication: MUSCLE SPASTICITY
     Dosage: 50 MG DAILY
     Route: 065
  3. SATIVEX [Suspect]
     Active Substance: NABIXIMOLS
     Indication: MUSCLE SPASTICITY
     Dosage: ACCORDING TO SICILY CRITERIA TILL REACHING 10 PUFFS DAILY (2.7MG DRONABINOL, 2.5MG CANNABIDIOL/DOSE)
     Route: 065

REACTIONS (2)
  - Suicidal ideation [Recovered/Resolved]
  - Substance-induced mood disorder [Recovered/Resolved]
